FAERS Safety Report 22298881 (Version 1)
Quarter: 2023Q2

REPORT INFORMATION
  Report Type: Spontaneous
  Country: SE (occurrence: SE)
  Receive Date: 20230509
  Receipt Date: 20230509
  Transmission Date: 20230722
  Serious: Yes (Other)
  Sender: FDA-Public Use
  Company Number: None

PATIENT
  Age: 75 Year
  Sex: Male

DRUGS (1)
  1. LEUPROLIDE ACETATE [Suspect]
     Active Substance: LEUPROLIDE ACETATE
     Indication: Prostate cancer
     Dosage: 1 DOSAGE FORM (1 INJ EVERY 12TH ROW) (LEUPRORELINACETAT: STRENGHT-5.25 MG) (TIDIGARE NAMN LEUPRORELI
     Route: 058
     Dates: start: 20230123

REACTIONS (2)
  - Prostatic specific antigen increased [Unknown]
  - Device issue [Unknown]

NARRATIVE: CASE EVENT DATE: 20230123
